FAERS Safety Report 12042716 (Version 1)
Quarter: 2016Q1

REPORT INFORMATION
  Report Type: Spontaneous
  Country: CH (occurrence: CH)
  Receive Date: 20160208
  Receipt Date: 20160208
  Transmission Date: 20160526
  Serious: Yes (Death, Hospitalization)
  Sender: FDA-Public Use
  Company Number: CH-SA-2016SA003961

PATIENT
  Sex: Female

DRUGS (5)
  1. SINTROM [Concomitant]
     Active Substance: ACENOCOUMAROL
     Indication: ANTICOAGULANT THERAPY
     Route: 065
  2. ELOXATIN [Suspect]
     Active Substance: OXALIPLATIN
     Indication: OVARIAN CANCER
     Route: 065
     Dates: start: 20151215
  3. AVASTIN [Concomitant]
     Active Substance: BEVACIZUMAB
     Indication: OVARIAN CANCER
     Route: 065
  4. CARBOPLATIN. [Concomitant]
     Active Substance: CARBOPLATIN
  5. TAXOTERE [Concomitant]
     Active Substance: DOCETAXEL
     Indication: OVARIAN CANCER
     Route: 065

REACTIONS (3)
  - Splenic haematoma [Unknown]
  - Pain [Unknown]
  - Death [Fatal]

NARRATIVE: CASE EVENT DATE: 20151218
